FAERS Safety Report 6371228-9 (Version None)
Quarter: 2009Q3

REPORT INFORMATION
  Report Type: 
  Country: None (occurrence: None)
  Receive Date: 20090923
  Receipt Date: 20070507
  Transmission Date: 20100115
  Serious: Yes (Hospitalization, Other)
  Sender: FDA-Public Use
  Company Number: US-ASTRAZENECA-2006UW27867

PATIENT
  Age: 17858 Day
  Sex: Female
  Weight: 96.3 kg

DRUGS (7)
  1. SEROQUEL [Suspect]
     Indication: POST-TRAUMATIC STRESS DISORDER
     Route: 048
     Dates: start: 19990101
  2. SEROQUEL [Suspect]
     Dosage: 25 - 125 MG
     Route: 048
     Dates: start: 19991217
  3. MECLIZINE [Concomitant]
     Route: 048
     Dates: start: 20040211
  4. ZOLOFT [Concomitant]
     Route: 048
     Dates: start: 20040211
  5. METOPROLOL TARTRATE [Concomitant]
     Dosage: 50 - 200 MG TWICE IN A DAY
     Route: 048
     Dates: start: 19991217
  6. PREVACID [Concomitant]
     Route: 048
     Dates: start: 19991217
  7. DONNATAL [Concomitant]
     Dosage: FOUR TIMES A DAY
     Dates: start: 19991217

REACTIONS (5)
  - BLOOD TRIGLYCERIDES INCREASED [None]
  - DIABETES MELLITUS [None]
  - HYPERCHOLESTEROLAEMIA [None]
  - HYPERLIPIDAEMIA [None]
  - PANCREATITIS [None]
